FAERS Safety Report 10868292 (Version 3)
Quarter: 2015Q1

REPORT INFORMATION
  Report Type: Spontaneous
  Country: US (occurrence: US)
  Receive Date: 20150225
  Receipt Date: 20150317
  Transmission Date: 20150721
  Serious: Yes (Hospitalization)
  Sender: FDA-Public Use
  Company Number: US-ACTAVIS-2015-01281

PATIENT
  Age: 89 Year
  Sex: Male
  Weight: 65 kg

DRUGS (2)
  1. DALVANCE [Suspect]
     Active Substance: DALBAVANCIN
     Indication: CELLULITIS
     Dosage: 1000 MG, SINGLE
     Route: 042
     Dates: start: 20141028
  2. DALVANCE [Suspect]
     Active Substance: DALBAVANCIN
     Dosage: 500 MG, SINGLE
     Route: 042
     Dates: start: 20141103

REACTIONS (3)
  - Skin exfoliation [None]
  - Rash macular [Recovered/Resolved]
  - Hypersensitivity [None]

NARRATIVE: CASE EVENT DATE: 20141104
